FAERS Safety Report 7425758-9 (Version None)
Quarter: 2011Q2

REPORT INFORMATION
  Report Type: 
  Country: None (occurrence: None)
  Receive Date: 20110418
  Receipt Date: 20110418
  Transmission Date: 20111010
  Serious: Yes (Death)
  Sender: FDA-Public Use
  Company Number: None

PATIENT
  Sex: Female
  Weight: 29.4838 kg

DRUGS (3)
  1. NICOTINE PATCH [Concomitant]
  2. TARCEVA [Suspect]
  3. ALBUTEROL [Concomitant]

REACTIONS (2)
  - VOMITING [None]
  - NAUSEA [None]
